FAERS Safety Report 25553223 (Version 1)
Quarter: 2025Q3

REPORT INFORMATION
  Report Type: Spontaneous
  Country: US (occurrence: US)
  Receive Date: 20250715
  Receipt Date: 20250715
  Transmission Date: 20251021
  Serious: No
  Sender: HIKMA
  Company Number: US-HIKMA PHARMACEUTICALS USA INC.-US-H14001-24-07845

PATIENT
  Sex: Male

DRUGS (1)
  1. AMOXICILLIN [Suspect]
     Active Substance: AMOXICILLIN
     Indication: Pneumonia
     Dosage: 6.75 MILLILITER, BID, FOR 10 DAYS (BUT ONLY TOOK IT FOR ONE DAY)
     Route: 048

REACTIONS (2)
  - Rash [Recovering/Resolving]
  - Swelling [Recovering/Resolving]
